FAERS Safety Report 25984009 (Version 1)
Quarter: 2025Q4

REPORT INFORMATION
  Report Type: Spontaneous
  Country: GB (occurrence: GB)
  Receive Date: 20251031
  Receipt Date: 20251031
  Transmission Date: 20260117
  Serious: Yes (Hospitalization, Other)
  Sender: INTERCEPT PHARMACEUTICALS
  Company Number: GB-INTERCEPT-PM2025001469

PATIENT
  Sex: Female

DRUGS (1)
  1. OCALIVA [Suspect]
     Active Substance: OBETICHOLIC ACID
     Indication: Primary biliary cholangitis
     Dosage: 10 MG, QD (TAB 30)

REACTIONS (3)
  - Hospitalisation [Not Recovered/Not Resolved]
  - Hepatic failure [Unknown]
  - Therapy cessation [Unknown]
